FAERS Safety Report 5914731-5 (Version None)
Quarter: 2008Q4

REPORT INFORMATION
  Report Type: 
  Country: None (occurrence: None)
  Receive Date: 20081010
  Receipt Date: 20081001
  Transmission Date: 20090506
  Serious: Yes (Hospitalization)
  Sender: FDA-Public Use
  Company Number: CA-BAXTER-2008BH008637

PATIENT
  Age: 23 Year
  Sex: Female

DRUGS (10)
  1. GAMMAGARD LIQUID [Suspect]
     Indication: FACIAL PARESIS
     Route: 042
     Dates: start: 20080724, end: 20080724
  2. GAMMAGARD LIQUID [Suspect]
     Indication: OFF LABEL USE
     Route: 042
     Dates: start: 20080724, end: 20080724
  3. GAMMAGARD LIQUID [Suspect]
     Route: 042
     Dates: start: 20080725, end: 20080725
  4. GAMMAGARD LIQUID [Suspect]
     Route: 042
     Dates: start: 20080725, end: 20080725
  5. GAMMAGARD LIQUID [Suspect]
     Route: 042
     Dates: start: 20080725, end: 20080725
  6. GAMMAGARD LIQUID [Suspect]
     Route: 042
     Dates: start: 20080725, end: 20080725
  7. GAMMAGARD LIQUID [Suspect]
     Route: 042
     Dates: start: 20080725, end: 20080725
  8. GAMMAGARD LIQUID [Suspect]
     Route: 042
     Dates: start: 20080725, end: 20080725
  9. GAMMAGARD LIQUID [Suspect]
     Route: 042
     Dates: start: 20080727, end: 20080727
  10. GAMMAGARD LIQUID [Suspect]
     Route: 042
     Dates: start: 20080727, end: 20080727

REACTIONS (4)
  - BLOOD DISORDER [None]
  - HAEMOGLOBIN DECREASED [None]
  - HAEMOLYSIS [None]
  - RED BLOOD CELL SPHEROCYTES PRESENT [None]
